FAERS Safety Report 21179382 (Version 1)
Quarter: 2022Q3

REPORT INFORMATION
  Report Type: Spontaneous
  Country: US (occurrence: None)
  Receive Date: 20220805
  Receipt Date: 20220805
  Transmission Date: 20221027
  Serious: Yes (Hospitalization)
  Sender: FDA-Public Use
  Company Number: None

PATIENT
  Age: 75 Year
  Sex: Male

DRUGS (2)
  1. APIXABAN [Suspect]
     Active Substance: APIXABAN
     Indication: Deep vein thrombosis
     Dates: start: 20200922, end: 20200922
  2. APIXABAN [Suspect]
     Active Substance: APIXABAN
     Indication: Vascular operation

REACTIONS (2)
  - Large intestine polyp [None]
  - Gastric haemorrhage [None]

NARRATIVE: CASE EVENT DATE: 20220227
